FAERS Safety Report 9617770 (Version 2)
Quarter: 2013Q4

REPORT INFORMATION
  Report Type: Report from Study
  Country: PT (occurrence: PT)
  Receive Date: 20131011
  Receipt Date: 20131118
  Transmission Date: 20140711
  Serious: Yes (Other)
  Sender: FDA-Public Use
  Company Number: PT-ROCHE-1288018

PATIENT
  Sex: 0

DRUGS (2)
  1. PEG-INTERFERON ALFA 2A [Suspect]
     Indication: HEPATITIS C
     Route: 065
  2. RIBAVIRIN [Suspect]
     Indication: HEPATITIS C
     Route: 065

REACTIONS (31)
  - Pancytopenia [Unknown]
  - Diarrhoea [Unknown]
  - Nausea [Unknown]
  - Vomiting [Unknown]
  - Abdominal pain [Unknown]
  - Dyspepsia [Unknown]
  - Dry mouth [Unknown]
  - Abdominal pain upper [Unknown]
  - Abdominal discomfort [Unknown]
  - Haemorrhoids [Unknown]
  - Aphthous stomatitis [Unknown]
  - Dysgeusia [Unknown]
  - Anaemia [Unknown]
  - Thrombocytopenia [Unknown]
  - Leukopenia [Unknown]
  - Epistaxis [Unknown]
  - Cough [Unknown]
  - Dyspnoea [Unknown]
  - Blindness transient [Unknown]
  - Visual acuity reduced [Unknown]
  - Metrorrhagia [Unknown]
  - Nail disorder [Unknown]
  - Breast engorgement [Unknown]
  - Drug hypersensitivity [Unknown]
  - Endocrine disorder [Unknown]
  - Blood glucose abnormal [Unknown]
  - Tinnitus [Unknown]
  - Ear pain [Unknown]
  - Hypertension [Unknown]
  - Tachycardia [Unknown]
  - Palpitations [Unknown]
